FAERS Safety Report 7423955-X (Version None)
Quarter: 2011Q2

REPORT INFORMATION
  Report Type: 
  Country: None (occurrence: None)
  Receive Date: 20110419
  Receipt Date: 20110411
  Transmission Date: 20111010
  Serious: Yes (Death, Hospitalization)
  Sender: FDA-Public Use
  Company Number: A0923355A

PATIENT
  Sex: Male

DRUGS (2)
  1. VALTREX [Suspect]
     Dosage: 500MG UNKNOWN
     Route: 048
  2. MEPRON [Suspect]
     Route: 065

REACTIONS (1)
  - NEOPLASM MALIGNANT [None]
